FAERS Safety Report 5865326-3 (Version None)
Quarter: 2008Q3

REPORT INFORMATION
  Report Type: 
  Country: None (occurrence: None)
  Receive Date: 20080829
  Receipt Date: 20080821
  Transmission Date: 20090109
  Serious: Yes (Hospitalization, Disabling, Other)
  Sender: FDA-Public Use
  Company Number: US-MERCK-0705USA02835

PATIENT
  Age: 58 Year
  Sex: Female

DRUGS (4)
  1. FOSAMAX [Suspect]
     Indication: OSTEOPENIA
     Route: 048
     Dates: start: 20060201, end: 20060615
  2. MENEST [Concomitant]
     Route: 065
     Dates: start: 19920101
  3. LEVOXYL [Concomitant]
     Route: 065
     Dates: start: 19670101
  4. ALLEGRA [Concomitant]
     Route: 065
     Dates: start: 19940101

REACTIONS (11)
  - AUTOIMMUNE THYROIDITIS [None]
  - BONE DISORDER [None]
  - BONE FRAGMENTATION [None]
  - GALLBLADDER DISORDER [None]
  - INFLAMMATION [None]
  - MENISCUS LESION [None]
  - ORAL CANDIDIASIS [None]
  - ROAD TRAFFIC ACCIDENT [None]
  - TEMPOROMANDIBULAR JOINT SYNDROME [None]
  - THYROID DISORDER [None]
  - VAGINAL INFECTION [None]
